FAERS Safety Report 21663888 (Version 1)
Quarter: 2022Q4

REPORT INFORMATION
  Report Type: Spontaneous
  Country: US (occurrence: None)
  Receive Date: 20221129
  Receipt Date: 20221129
  Transmission Date: 20230112
  Serious: Yes (Hospitalization)
  Sender: FDA-Public Use
  Company Number: None

PATIENT
  Sex: Male

DRUGS (2)
  1. ABIRATERONE ACETATE [Suspect]
     Active Substance: ABIRATERONE ACETATE
     Indication: Prostate cancer
     Dosage: 1000MG ONCE DAIILY ORAL?
     Route: 048
     Dates: start: 20220426
  2. PREDNISONE [Concomitant]
     Active Substance: PREDNISONE

REACTIONS (3)
  - Depression [None]
  - Anxiety [None]
  - Hallucination [None]
